FAERS Safety Report 15752664 (Version 1)
Quarter: 2018Q4

REPORT INFORMATION
  Report Type: Report from Study
  Country: US (occurrence: US)
  Receive Date: 20181221
  Receipt Date: 20181221
  Transmission Date: 20190205
  Serious: Yes (Hospitalization)
  Sender: FDA-Public Use
  Company Number: US-ACTELION-A-US2017-162200

PATIENT
  Age: 54 Year
  Sex: Male

DRUGS (2)
  1. UPTRAVI [Suspect]
     Active Substance: SELEXIPAG
     Dosage: UNK
     Route: 048
     Dates: start: 20160906
  2. UPTRAVI [Suspect]
     Active Substance: SELEXIPAG
     Indication: PULMONARY ARTERIAL HYPERTENSION
     Dosage: 1600 MCG, BID
     Route: 048
     Dates: start: 20161101

REACTIONS (8)
  - Condition aggravated [Unknown]
  - Product dose omission [Unknown]
  - Prostate cancer [Unknown]
  - Fluid retention [Unknown]
  - Dyspnoea exertional [Unknown]
  - Angiopathy [Unknown]
  - Biopsy prostate [Unknown]
  - Chest pain [Unknown]

NARRATIVE: CASE EVENT DATE: 20171024
